FAERS Safety Report 5961906-5 (Version None)
Quarter: 2008Q4

REPORT INFORMATION
  Report Type: 
  Country: None (occurrence: None)
  Receive Date: 20081121
  Receipt Date: 20081119
  Transmission Date: 20090506
  Serious: Yes (Death)
  Sender: FDA-Public Use
  Company Number: ZA-BRISTOL-MYERS SQUIBB COMPANY-14414981

PATIENT
  Sex: Female

DRUGS (4)
  1. VIDEX [Suspect]
     Route: 064
     Dates: end: 20080613
  2. RETROVIR [Suspect]
     Route: 064
  3. KALETRA [Suspect]
     Dosage: 1 DOSAGE FORM=800MG/200MG
     Route: 064
  4. EPIVIR [Suspect]
     Route: 064
     Dates: start: 20080613

REACTIONS (2)
  - PREGNANCY [None]
  - STILLBIRTH [None]
